FAERS Safety Report 18729716 (Version 1)
Quarter: 2021Q1

REPORT INFORMATION
  Report Type: Report from Study
  Country: US (occurrence: US)
  Receive Date: 20210112
  Receipt Date: 20210112
  Transmission Date: 20210419
  Serious: Yes (Hospitalization)
  Sender: FDA-Public Use
  Company Number: US-MYLANLABS-2021M1001010

PATIENT
  Age: 17 Year
  Sex: Male

DRUGS (1)
  1. KETOROLAC [Suspect]
     Active Substance: KETOROLAC TROMETHAMINE
     Indication: PROCEDURAL PAIN
     Dosage: 20 MILLIGRAM
     Route: 065

REACTIONS (2)
  - Extradural haematoma [Recovered/Resolved]
  - Hemianopia homonymous [Recovering/Resolving]
